FAERS Safety Report 7254191-8 (Version None)
Quarter: 2011Q1

REPORT INFORMATION
  Report Type: 
  Country: None (occurrence: None)
  Receive Date: 20110129
  Receipt Date: 20100215
  Transmission Date: 20110831
  Serious: No
  Sender: FDA-Public Use
  Company Number: US-ABBOTT-10P-163-0617665-00

PATIENT
  Sex: Female
  Weight: 75.818 kg

DRUGS (10)
  1. ATENOLOL [Concomitant]
     Indication: HYPERTENSION
     Dates: start: 19900101
  2. SUPER SHIELD [Concomitant]
     Indication: PROBIOTIC THERAPY
  3. ASPIRIN [Concomitant]
     Indication: AORTIC VALVE REPLACEMENT
  4. HUMIRA [Suspect]
     Indication: CROHN'S DISEASE
  5. PROZAC [Concomitant]
     Indication: ANXIETY
  6. NORVASC [Concomitant]
     Indication: HYPERTENSION
  7. XANAX [Concomitant]
     Indication: ANXIETY
  8. PROZAC [Concomitant]
  9. LECITIN [Concomitant]
     Indication: CHOLELITHIASIS
  10. ASCORBIC ACID [Concomitant]
     Indication: PRODUCT USED FOR UNKNOWN INDICATION

REACTIONS (13)
  - BLOOD TRIGLYCERIDES INCREASED [None]
  - VERY LOW DENSITY LIPOPROTEIN INCREASED [None]
  - BLOOD CHOLESTEROL INCREASED [None]
  - PRURITUS [None]
  - NODULE [None]
  - INJECTION SITE PRURITUS [None]
  - DRY SKIN [None]
  - LOW DENSITY LIPOPROTEIN INCREASED [None]
  - BURNING SENSATION [None]
  - GALLBLADDER PAIN [None]
  - RASH [None]
  - CHOLELITHIASIS [None]
  - DIARRHOEA [None]
